FAERS Safety Report 18100663 (Version 2)
Quarter: 2020Q3

REPORT INFORMATION
  Report Type: Report from Study
  Country: IT (occurrence: IT)
  Receive Date: 20200731
  Receipt Date: 20200813
  Transmission Date: 20201103
  Serious: Yes (Other)
  Sender: FDA-Public Use
  Company Number: IT-JNJFOC-20200736198

PATIENT

DRUGS (2)
  1. REMICADE [Suspect]
     Active Substance: INFLIXIMAB
     Indication: CROHN^S DISEASE
     Dosage: 5 MG/KG AT WEEK 0, 2, 6, AND THEN EVERY 8 WEEKS
     Route: 042
  2. REMICADE [Suspect]
     Active Substance: INFLIXIMAB
     Indication: COLITIS ULCERATIVE

REACTIONS (10)
  - Erythema [Unknown]
  - Dizziness [Unknown]
  - Drug ineffective [Unknown]
  - Malignant melanoma in situ [Unknown]
  - Dermatitis [Unknown]
  - Pruritus [Unknown]
  - Urinary tract infection [Unknown]
  - Arthralgia [Unknown]
  - Psoriasis [Unknown]
  - Rash [Unknown]
